FAERS Safety Report 4777253-3 (Version None)
Quarter: 2005Q3

REPORT INFORMATION
  Report Type: 
  Country: None (occurrence: None)
  Receive Date: 20050923
  Receipt Date: 20050112
  Transmission Date: 20060218
  Serious: Yes (Hospitalization)
  Sender: FDA-Public Use
  Company Number: 2005SE00192

PATIENT
  Age: 55 Year
  Sex: Male

DRUGS (5)
  1. OMEPRAZOLE [Suspect]
     Route: 048
     Dates: start: 20041028, end: 20041206
  2. MAVERAL [Suspect]
     Route: 048
     Dates: start: 20041028, end: 20041206
  3. LEXOTAN [Concomitant]
     Dosage: (SOLUT. 2.5 MG/ML)
     Route: 048
  4. BENERVA [Concomitant]
     Route: 042
     Dates: start: 20041128, end: 20041128
  5. LEDERFOLIN [Concomitant]
     Route: 048

REACTIONS (4)
  - BURNS THIRD DEGREE [None]
  - NAIL DISORDER [None]
  - NEUROPATHY PERIPHERAL [None]
  - ROSEOLA [None]
